FAERS Safety Report 4367680-0 (Version None)
Quarter: 2004Q2

REPORT INFORMATION
  Report Type: 
  Country: None (occurrence: None)
  Receive Date: 20040601
  Receipt Date: 20040519
  Transmission Date: 20050107
  Serious: Yes (Death)
  Sender: FDA-Public Use
  Company Number: FR-GLAXOSMITHKLINE-B0333411A

PATIENT
  Age: 38 Year
  Sex: Male

DRUGS (3)
  1. DEROXAT [Suspect]
     Indication: DEPRESSION
     Route: 048
     Dates: end: 20040111
  2. VALIUM [Concomitant]
     Dosage: 10MG UNKNOWN
     Route: 048
     Dates: end: 20040111
  3. NOCTRAN [Concomitant]
     Dosage: 10MG UNKNOWN
     Route: 048
     Dates: end: 20040111

REACTIONS (2)
  - CORONARY ARTERY STENOSIS [None]
  - MYOCARDIAL INFARCTION [None]
